FAERS Safety Report 24268663 (Version 4)
Quarter: 2024Q4

REPORT INFORMATION
  Report Type: Spontaneous
  Country: CN (occurrence: CN)
  Receive Date: 20240830
  Receipt Date: 20241104
  Transmission Date: 20250114
  Serious: No
  Sender: ELI LILLY AND COMPANY
  Company Number: CN-ELI_LILLY_AND_COMPANY-CN202408014779

PATIENT
  Age: 79 Year
  Sex: Female
  Weight: 70 kg

DRUGS (2)
  1. HUMULIN R [Suspect]
     Active Substance: INSULIN HUMAN
     Indication: Diabetes mellitus
     Dosage: 20 U, TID
     Route: 058
     Dates: start: 2004
  2. METFORMIN [Concomitant]
     Active Substance: METFORMIN HYDROCHLORIDE
     Indication: Diabetes mellitus

REACTIONS (4)
  - Hypoacusis [Unknown]
  - Confusional state [Unknown]
  - Memory impairment [Unknown]
  - Product dose omission issue [Unknown]
